FAERS Safety Report 5485336-8 (Version None)
Quarter: 2007Q4

REPORT INFORMATION
  Report Type: 
  Country: None (occurrence: None)
  Receive Date: 20071015
  Receipt Date: 20071003
  Transmission Date: 20080405
  Serious: Yes (Hospitalization)
  Sender: FDA-Public Use
  Company Number: CH-WYE-H00488607

PATIENT
  Age: 82 Year
  Sex: Male

DRUGS (11)
  1. AMIODARONE [Suspect]
     Indication: ATRIAL FIBRILLATION
     Route: 048
  2. AMIODARONE [Suspect]
     Indication: ATRIAL FLUTTER
  3. PHENPROCOUMON [Suspect]
     Indication: ATRIAL FIBRILLATION
     Dosage: UNSPECIFIED
     Route: 048
     Dates: end: 20070624
  4. PHENPROCOUMON [Suspect]
     Indication: ATRIAL FLUTTER
  5. TELMISARTAN [Concomitant]
     Indication: ESSENTIAL HYPERTENSION
     Dosage: UNSPECIFIED
     Route: 048
  6. TORSEMIDE [Concomitant]
     Dosage: 20 MG FREQUENCY UNSPECIFIED
     Route: 048
  7. KALINOR [Concomitant]
     Dosage: UNSPECIFIED
     Route: 048
  8. TROMCARDIN [Concomitant]
     Dosage: UNSPECIFIED
     Route: 048
  9. HEPARIN-FRACTION, SODIUM SALT [Suspect]
     Indication: ATRIAL FIBRILLATION
     Route: 058
     Dates: start: 20070624, end: 20070703
  10. HEPARIN-FRACTION, SODIUM SALT [Suspect]
     Indication: ATRIAL FLUTTER
  11. PRAVASTATIN [Concomitant]
     Dosage: UNSPECIFIED
     Route: 048
     Dates: end: 20070703

REACTIONS (5)
  - BRADYCARDIA [None]
  - HAEMATOMA [None]
  - HAEMOGLOBIN DECREASED [None]
  - HYPOTENSION [None]
  - INTERNATIONAL NORMALISED RATIO INCREASED [None]
